FAERS Safety Report 9631777 (Version 1)
Quarter: 2013Q4

REPORT INFORMATION
  Report Type: Spontaneous
  Country: JP (occurrence: None)
  Receive Date: 20131015
  Receipt Date: 20131015
  Transmission Date: 20140711
  Serious: Yes (Other)
  Sender: FDA-Public Use
  Company Number: 2013JP009457

PATIENT
  Age: 61 Year
  Sex: Male
  Weight: 69 kg

DRUGS (12)
  1. ALOXI [Suspect]
     Indication: PROPHYLAXIS OF NAUSEA AND VOMITING
     Route: 042
     Dates: start: 20130926, end: 20130926
  2. DECADRON (DEXAMETHASONE SODIUM PHOSPHATE) [Suspect]
     Indication: PROPHYLAXIS
     Route: 041
     Dates: start: 20130926, end: 20130926
  3. GASTER (FAMOTIDINE) [Suspect]
     Indication: PROPHYLAXIS
     Route: 041
     Dates: start: 20130926, end: 20130926
  4. KRESTIN (POLYSACCHARIDE-K) [Concomitant]
  5. SLOW-K (POTASSIUM CHLORIDE) [Concomitant]
  6. ALEISON (EPINASTINE) [Concomitant]
  7. ADONA (CARBAZOCHROME SODIUM SULFONATE) [Concomitant]
  8. TRANSAMIN (TRANEXAMIC ACID) [Concomitant]
  9. GOSHAJINKIGAN (HERBAL EXTRACT NOS) [Concomitant]
  10. HOCHUUEKKITOU (HERBAL EXTRACT NOS) [Concomitant]
  11. EXFORGE (AMLODIPINE BESILATE, VALSARTAN) [Concomitant]
  12. NORVASC (AMLODIPINE BESILATE) [Concomitant]

REACTIONS (2)
  - Bradycardia [None]
  - Blood pressure decreased [None]
